FAERS Safety Report 22362159 (Version 1)
Quarter: 2023Q2

REPORT INFORMATION
  Report Type: Spontaneous
  Country: AR (occurrence: AR)
  Receive Date: 20230524
  Receipt Date: 20230524
  Transmission Date: 20230721
  Serious: Yes (Death, Hospitalization)
  Sender: FDA-Public Use
  Company Number: AR-ELI_LILLY_AND_COMPANY-AR202305012946

PATIENT
  Age: 85 Year
  Sex: Male

DRUGS (1)
  1. CYRAMZA [Suspect]
     Active Substance: RAMUCIRUMAB
     Indication: Gastric cancer
     Dosage: 500 MG, OTHER (EVERY 15 DAYS)
     Route: 065
     Dates: start: 20220523, end: 20220618

REACTIONS (2)
  - Death [Fatal]
  - General physical health deterioration [Unknown]
